FAERS Safety Report 20443279 (Version 2)
Quarter: 2022Q1

REPORT INFORMATION
  Report Type: Report from Study
  Country: US (occurrence: US)
  Receive Date: 20220208
  Receipt Date: 20220216
  Transmission Date: 20220423
  Serious: Yes (Death, Other)
  Sender: FDA-Public Use
  Company Number: US-BAYER-2022A019692

PATIENT
  Age: 66 Year
  Sex: Female

DRUGS (7)
  1. ADEMPAS [Suspect]
     Active Substance: RIOCIGUAT
     Indication: Pulmonary arterial hypertension
     Dosage: UNK
     Dates: start: 20180110
  2. ADEMPAS [Suspect]
     Active Substance: RIOCIGUAT
     Indication: Pulmonary arterial hypertension
     Dosage: 2.5 MG, TID
     Route: 048
     Dates: end: 20220115
  3. PREDNISONE [Concomitant]
     Active Substance: PREDNISONE
     Dosage: UNK
  4. CELLCEPT [Concomitant]
     Active Substance: MYCOPHENOLATE MOFETIL
     Dosage: UNK
  5. COVID-19 VACCINE [Concomitant]
     Dosage: 1 DF, ONCE
  6. COVID-19 VACCINE [Concomitant]
     Dosage: 1 DF, ONCE
  7. COVID-19 VACCINE [Concomitant]
     Dosage: 1 DF, ONCE

REACTIONS (3)
  - COVID-19 pneumonia [Fatal]
  - Respiratory failure [Fatal]
  - Scleroderma [None]

NARRATIVE: CASE EVENT DATE: 20220115
